FAERS Safety Report 4757125-0 (Version None)
Quarter: 2005Q3

REPORT INFORMATION
  Report Type: 
  Country: None (occurrence: None)
  Receive Date: 20050829
  Receipt Date: 20050819
  Transmission Date: 20060218
  Serious: Yes (Hospitalization, Other)
  Sender: FDA-Public Use
  Company Number: KII-2005-0018234

PATIENT
  Age: 52 Year
  Sex: Female

DRUGS (5)
  1. OXYCODONE HCL [Suspect]
     Dosage: ORAL
     Route: 048
  2. CLONIDINE [Suspect]
     Dosage: ORAL
     Route: 048
  3. BENZODIAZEPINE DERIVATIVES [Suspect]
     Dosage: ORAL
     Route: 048
  4. ANTIDEPRESSANTS [Suspect]
     Dosage: ORAL
     Route: 048
  5. OXYGEN (OXYGEN) [Concomitant]

REACTIONS (6)
  - CONFUSIONAL STATE [None]
  - HYPOTENSION [None]
  - INTENTIONAL MISUSE [None]
  - MEDICATION ERROR [None]
  - OXYGEN SATURATION DECREASED [None]
  - SOMNOLENCE [None]
